FAERS Safety Report 9608424 (Version 1)
Quarter: 2013Q4

REPORT INFORMATION
  Report Type: Spontaneous
  Country: US (occurrence: US)
  Receive Date: 20131009
  Receipt Date: 20131009
  Transmission Date: 20140711
  Serious: Yes (Other)
  Sender: FDA-Public Use
  Company Number: PHEH2013US020933

PATIENT
  Sex: Female

DRUGS (14)
  1. DIOVAN HCT [Suspect]
     Dosage: 1 DF (320/25 MG), QD
  2. LASIX [Concomitant]
     Dosage: UNK UKN, PRN
  3. SYNTHROID [Concomitant]
  4. CYMBALTA [Concomitant]
  5. NEURONTIN [Concomitant]
  6. POTASSIUM [Concomitant]
  7. OXYCODONE [Concomitant]
  8. OXYCONTIN [Concomitant]
  9. ADVAIR [Concomitant]
  10. IMITREX ^CERENEX^ [Concomitant]
  11. CLONAZEPAM [Concomitant]
  12. VITAMIN B COMPLEX [Concomitant]
  13. ESTRADIOL [Concomitant]
  14. GABAPENTIN [Concomitant]

REACTIONS (4)
  - Road traffic accident [Unknown]
  - Hernia [Unknown]
  - Systemic lupus erythematosus [Unknown]
  - Back disorder [Unknown]
